FAERS Safety Report 9060097 (Version 1)
Quarter: 2013Q1

REPORT INFORMATION
  Report Type: Spontaneous
  Country: US (occurrence: US)
  Receive Date: 20130212
  Receipt Date: 20130212
  Transmission Date: 20140127
  Serious: Yes (Hospitalization)
  Sender: FDA-Public Use
  Company Number: US-AMGEN-USASP2013009016

PATIENT
  Age: 55 Year
  Sex: Male

DRUGS (7)
  1. NEULASTA [Suspect]
     Indication: PRODUCT USED FOR UNKNOWN INDICATION
     Dosage: UNK
  2. NEUPOGEN [Suspect]
     Indication: PRODUCT USED FOR UNKNOWN INDICATION
     Dosage: UNK
  3. CHEMOTHERAPEUTICS [Concomitant]
     Indication: CHRONIC LYMPHOCYTIC LEUKAEMIA
     Dosage: UNK UNK, QMO
  4. CHEMOTHERAPEUTICS [Concomitant]
     Indication: B-CELL SMALL LYMPHOCYTIC LYMPHOMA
  5. ACYCLOVIR                          /00587301/ [Concomitant]
     Dosage: UNK
  6. ALLOPURINOL [Concomitant]
     Dosage: UNK
  7. PROCHLORPERAZ [Concomitant]
     Indication: NAUSEA
     Dosage: UNK

REACTIONS (5)
  - Dyspnoea [Unknown]
  - Anxiety [Unknown]
  - Insomnia [Unknown]
  - Hyperhidrosis [Unknown]
  - Cardiac disorder [Unknown]
